FAERS Safety Report 15795690 (Version 3)
Quarter: 2019Q1

REPORT INFORMATION
  Report Type: Spontaneous
  Country: NL (occurrence: NL)
  Receive Date: 20190107
  Receipt Date: 20190321
  Transmission Date: 20190417
  Serious: Yes (Other)
  Sender: FDA-Public Use
  Company Number: NL-MYLANLABS-2018M1097957

PATIENT
  Age: 57 Year
  Sex: Male
  Weight: 85 kg

DRUGS (13)
  1. FENTANYL. [Suspect]
     Active Substance: FENTANYL
     Indication: BACK PAIN
     Dosage: 50 UG, UNK, 8 X PER WEEK
     Route: 062
  2. RABEPRAZOLE [Concomitant]
     Active Substance: RABEPRAZOLE
     Indication: GASTRIC DISORDER
     Dosage: 20 MILLIGRAM, QD,(20 MG, QD)
     Route: 065
  3. OXAZEPAM. [Concomitant]
     Active Substance: OXAZEPAM
     Indication: RESTLESSNESS
     Dosage: 150 MILLIGRAM, QD(50 MG, TID)
     Route: 065
  4. METFORMIN [Concomitant]
     Active Substance: METFORMIN HYDROCHLORIDE
     Indication: DIABETES MELLITUS
     Dosage: UNK
     Route: 065
  5. QUETIAPINE. [Concomitant]
     Active Substance: QUETIAPINE
     Indication: RESTLESSNESS
     Dosage: 200 MILLIGRAM, QD(25 MG, 8QD)
     Route: 065
  6. MIRTAZAPINE. [Concomitant]
     Active Substance: MIRTAZAPINE
     Indication: RESTLESSNESS
     Dosage: 30 MG, QD
     Route: 065
  7. FENTANYL. [Suspect]
     Active Substance: FENTANYL
     Dosage: 450 MICROGRAM, QD,150 UG, TID, FOR A WEEK
     Route: 062
  8. FENTANYL. [Suspect]
     Active Substance: FENTANYL
     Dosage: 50 MICROGRAM, (17 X PER WEEK)
     Route: 062
  9. BISOPROLOL FUMERATE [Concomitant]
     Active Substance: BISOPROLOL FUMARATE
     Indication: PALPITATIONS
     Dosage: 10 MG, QD
     Route: 065
  10. DIAZEPAM. [Concomitant]
     Active Substance: DIAZEPAM
     Indication: RESTLESSNESS
     Dosage: 70 MILLIGRAM, QD, (10 MG, 7QD)
     Route: 065
  11. ESCITALOPRAM [Concomitant]
     Active Substance: ESCITALOPRAM OXALATE
     Indication: RESTLESSNESS
     Dosage: 20 MG, QD
     Route: 065
  12. PIPAMPERONE [Concomitant]
     Active Substance: PIPAMPERONE
     Indication: PRODUCT USED FOR UNKNOWN INDICATION
     Dosage: UNK
  13. PREGABALINE [Concomitant]
     Active Substance: PREGABALIN
     Indication: RESTLESSNESS
     Dosage: 300 MILLIGRAM, QD(150 MG, BID)
     Route: 065

REACTIONS (32)
  - Periarthritis [Unknown]
  - Spondylitis [Unknown]
  - Bursa disorder [Unknown]
  - Withdrawal syndrome [Unknown]
  - Anger [Unknown]
  - Depression [Unknown]
  - Foreign body in eye [Unknown]
  - Pain [Unknown]
  - Type 2 diabetes mellitus [Unknown]
  - Cellulitis [Unknown]
  - Prostatism [Unknown]
  - Essential hypertension [Unknown]
  - Urinary retention [Unknown]
  - Product adhesion issue [Unknown]
  - Alcohol problem [Unknown]
  - Psychotic disorder [Unknown]
  - Mental impairment [Not Recovered/Not Resolved]
  - Neuropathy peripheral [Unknown]
  - Abdominal pain [Unknown]
  - Dizziness [Unknown]
  - Influenza [Unknown]
  - Constipation [Unknown]
  - Overdose [Unknown]
  - Headache [Unknown]
  - Hyperhidrosis [Unknown]
  - Musculoskeletal chest pain [Unknown]
  - Drug dependence [Unknown]
  - Blood glucose increased [Recovering/Resolving]
  - Hepatic steatosis [Unknown]
  - Nightmare [Unknown]
  - Cholelithiasis [Unknown]
  - Erectile dysfunction [Unknown]
